FAERS Safety Report 4867588-8 (Version None)
Quarter: 2005Q4

REPORT INFORMATION
  Report Type: 
  Country: None (occurrence: None)
  Receive Date: 20051222
  Receipt Date: 20051214
  Transmission Date: 20060501
  Serious: Yes (Other)
  Sender: FDA-Public Use
  Company Number: 2005167778

PATIENT
  Age: 23 Year
  Sex: Male
  Weight: 54.4316 kg

DRUGS (1)
  1. BENYLIN [Suspect]
     Indication: TOOTHACHE
     Dosage: 1 (4 OZ) BOTTLE ONCE, ORAL
     Route: 048
     Dates: start: 20051214, end: 20051214

REACTIONS (3)
  - DIARRHOEA [None]
  - OFF LABEL USE [None]
  - SELF-MEDICATION [None]
